FAERS Safety Report 8226488-6 (Version None)
Quarter: 2012Q1

REPORT INFORMATION
  Report Type: 
  Country: None (occurrence: None)
  Receive Date: 20120322
  Receipt Date: 20120309
  Transmission Date: 20120608
  Serious: Yes (Death, Hospitalization, Other)
  Sender: FDA-Public Use
  Company Number: US-PAR PHARMACEUTICAL, INC-2012SCPR004277

PATIENT

DRUGS (9)
  1. SERTRALINE HYDROCHLORIDE [Suspect]
     Indication: DEPRESSION
     Dosage: UNK, UNKNOWN
     Route: 065
  2. SERTRALINE HYDROCHLORIDE [Suspect]
     Dosage: 50 MG, SINGLE (ADDITIONAL)
     Route: 065
  3. QUETIAPINE [Suspect]
     Indication: PRODUCT USED FOR UNKNOWN INDICATION
     Dosage: 25 MG, SINGLE  (ADDITIONAL)
     Route: 065
  4. LORAZEPAM [Suspect]
     Indication: AGITATION
     Dosage: 2 MG, SINGLE
  5. LORAZEPAM [Suspect]
     Dosage: 1 MG, SINGLE (ADDITIONAL)
     Route: 030
  6. RISPERIDONE [Suspect]
     Indication: PRODUCT USED FOR UNKNOWN INDICATION
     Dosage: 0.5 MG, AT BEDTIME
     Route: 065
  7. LORAZEPAM [Suspect]
     Indication: CATATONIA
     Dosage: 2 MG, SINGLE
     Route: 030
  8. SERTRALINE HYDROCHLORIDE [Suspect]
     Dosage: 50 MG, SINGLE
     Route: 065
  9. SERTRALINE HYDROCHLORIDE [Suspect]
     Dosage: 50 MG DAILY
     Route: 065

REACTIONS (8)
  - CATATONIA [None]
  - WHITE BLOOD CELL COUNT INCREASED [None]
  - CARDIO-RESPIRATORY ARREST [None]
  - HYPOKALAEMIA [None]
  - UNRESPONSIVE TO STIMULI [None]
  - DEATH [None]
  - FALL [None]
  - PULMONARY EMBOLISM [None]
